FAERS Safety Report 5007257-7 (Version None)
Quarter: 2006Q2

REPORT INFORMATION
  Report Type: 
  Country: None (occurrence: None)
  Receive Date: 20060518
  Receipt Date: 20060518
  Transmission Date: 20061013
  Serious: Yes (Life-Threatening, Other)
  Sender: FDA-Public Use
  Company Number: None

PATIENT
  Age: 38 Year
  Sex: Female
  Weight: 65.7716 kg

DRUGS (2)
  1. CEFAZOLIN [Suspect]
     Indication: PNEUMONIA
     Dosage: 2 UNIT INJECTION ONCE
     Dates: start: 20051205, end: 20051205
  2. CEFAZOLIN [Suspect]

REACTIONS (5)
  - CONDITION AGGRAVATED [None]
  - PHARMACEUTICAL PRODUCT COMPLAINT [None]
  - PNEUMONIA [None]
  - POOR QUALITY DRUG ADMINISTERED [None]
  - SUFFOCATION FEELING [None]
